FAERS Safety Report 18482354 (Version 1)
Quarter: 2020Q4

REPORT INFORMATION
  Report Type: Spontaneous
  Country: US (occurrence: US)
  Receive Date: 20201109
  Receipt Date: 20201109
  Transmission Date: 20210114
  Serious: No
  Sender: FDA-Public Use
  Company Number: US-FOUNDATIONCONSUMERHC-2020-US-015581

PATIENT
  Age: 18 Year
  Sex: Female
  Weight: 72.58 kg

DRUGS (4)
  1. BASAGLAR [Concomitant]
     Active Substance: INSULIN GLARGINE
  2. PLAN B ONE-STEP [Suspect]
     Active Substance: LEVONORGESTREL
     Indication: POST COITAL CONTRACEPTION
     Dosage: 1.5 MG X 2 DOSES
     Route: 048
     Dates: start: 201908, end: 20200724
  3. GLIPIZIDE. [Concomitant]
     Active Substance: GLIPIZIDE
  4. TRI-LOESTRIN [Concomitant]
     Dates: start: 201909

REACTIONS (3)
  - Abdominal pain upper [Not Recovered/Not Resolved]
  - Menstruation irregular [Recovered/Resolved]
  - Pollakiuria [Not Recovered/Not Resolved]

NARRATIVE: CASE EVENT DATE: 2019
